FAERS Safety Report 8836583 (Version 1)
Quarter: 2012Q4

REPORT INFORMATION
  Report Type: Spontaneous
  Country: US (occurrence: None)
  Receive Date: 20121009
  Receipt Date: 20121009
  Transmission Date: 20130627
  Serious: Yes (Death)
  Sender: FDA-Public Use
  Company Number: DSA_59957_2012

PATIENT
  Age: 74 Year
  Sex: Female

DRUGS (11)
  1. XENAZINE 12.5 MG (NOT SPECIFIED) [Suspect]
     Indication: HUNTINGTON^S DISEASE
     Route: 048
     Dates: start: 20120920, end: 20120923
  2. XENAZINE 12.5 MG (NOT SPECIFIED) [Suspect]
     Indication: HUNTINGTON^S DISEASE
     Route: 048
     Dates: start: 20120906, end: 20120912
  3. XENAZINE 12.5 MG (NOT SPECIFIED) [Suspect]
     Indication: HUNTINGTON^S DISEASE
     Route: 048
     Dates: start: 20120913, end: 20120919
  4. OYSTER SHELL CALCIUM [Concomitant]
  5. HALOPERIDOL [Concomitant]
  6. KETOCONAZOLE [Concomitant]
  7. CLONAZEPAM [Concomitant]
  8. DERMASIL /00337102/ [Concomitant]
  9. DOCUSATE [Concomitant]
  10. MILK OF MAGNESIA [Concomitant]
  11. VITAMIN D3 [Concomitant]

REACTIONS (2)
  - Respiratory disorder [None]
  - Failure to thrive [None]
